FAERS Safety Report 21903579 (Version 1)
Quarter: 2023Q1

REPORT INFORMATION
  Report Type: Spontaneous
  Country: US (occurrence: US)
  Receive Date: 20230124
  Receipt Date: 20230124
  Transmission Date: 20230417
  Serious: Yes (Other)
  Sender: FDA-Public Use
  Company Number: US-MYLANLABS-2023M1007829

PATIENT
  Age: 86 Year
  Sex: Female

DRUGS (15)
  1. TOBRAMYCIN [Suspect]
     Active Substance: TOBRAMYCIN
     Indication: Keratitis bacterial
     Dosage: 14 MILLIGRAM PER MILLILITRE, QH
     Route: 061
  2. TOBRAMYCIN [Suspect]
     Active Substance: TOBRAMYCIN
     Indication: Staphylococcal infection
  3. TOBRAMYCIN [Suspect]
     Active Substance: TOBRAMYCIN
     Indication: Staphylococcal infection
  4. TOBRAMYCIN [Suspect]
     Active Substance: TOBRAMYCIN
     Indication: Achromobacter infection
  5. VANCOMYCIN [Suspect]
     Active Substance: VANCOMYCIN
     Indication: Keratitis bacterial
     Dosage: 25 MILLIGRAM PER MILLILITRE, QH
     Route: 061
  6. VANCOMYCIN [Suspect]
     Active Substance: VANCOMYCIN
     Indication: Staphylococcal infection
  7. VANCOMYCIN [Suspect]
     Active Substance: VANCOMYCIN
     Indication: Staphylococcal infection
  8. VANCOMYCIN [Suspect]
     Active Substance: VANCOMYCIN
     Indication: Achromobacter infection
  9. MOXIFLOXACIN [Suspect]
     Active Substance: MOXIFLOXACIN
     Indication: Keratitis bacterial
     Dosage: UNK
     Route: 061
  10. MOXIFLOXACIN [Suspect]
     Active Substance: MOXIFLOXACIN
     Indication: Staphylococcal infection
  11. MOXIFLOXACIN [Suspect]
     Active Substance: MOXIFLOXACIN
     Indication: Staphylococcal infection
  12. MOXIFLOXACIN [Suspect]
     Active Substance: MOXIFLOXACIN
     Indication: Achromobacter infection
  13. LOTEPREDNOL [Suspect]
     Active Substance: LOTEPREDNOL
     Indication: Infection prophylaxis
     Dosage: UNK, TID
     Route: 061
  14. FAMCICLOVIR [Concomitant]
     Active Substance: FAMCICLOVIR
     Indication: Infection prophylaxis
     Dosage: 250 MILLIGRAM, BID
     Route: 048
  15. VORICONAZOLE [Concomitant]
     Active Substance: VORICONAZOLE
     Indication: Anti-infective therapy
     Dosage: 1 PERCENT
     Route: 065

REACTIONS (1)
  - Drug ineffective [Unknown]
